FAERS Safety Report 7104317-1 (Version None)
Quarter: 2010Q4

REPORT INFORMATION
  Report Type: 
  Country: None (occurrence: None)
  Receive Date: 20101115
  Receipt Date: 20100624
  Transmission Date: 20110411
  Serious: No
  Sender: FDA-Public Use
  Company Number: US-ALLERGAN-1008265US

PATIENT
  Sex: Female

DRUGS (1)
  1. BOTOX COSMETIC [Suspect]
     Indication: SKIN WRINKLING
     Dosage: 15 UNITS, UNK
     Dates: start: 20100623, end: 20100623

REACTIONS (2)
  - PROCEDURAL HEADACHE [None]
  - WRONG TECHNIQUE IN DRUG USAGE PROCESS [None]
